FAERS Safety Report 19420983 (Version 1)
Quarter: 2021Q2

REPORT INFORMATION
  Report Type: Spontaneous
  Country: DE (occurrence: DE)
  Receive Date: 20210615
  Receipt Date: 20210615
  Transmission Date: 20210717
  Serious: Yes (Congenital Anomaly)
  Sender: FDA-Public Use
  Company Number: DE-ELI_LILLY_AND_COMPANY-DE202106002092

PATIENT
  Age: 1 Day
  Sex: Female
  Weight: 3.36 kg

DRUGS (8)
  1. CYTOTEC [Concomitant]
     Active Substance: MISOPROSTOL
     Indication: LABOUR INDUCTION
     Dosage: 40.1. ? 40.1. GESTATIONAL WEEK   (3RD TRIMESTER)
     Route: 064
     Dates: start: 20200622, end: 20200622
  2. FOLSAURE SANAVITA [Concomitant]
     Indication: VITAMIN SUPPLEMENTATION
     Dosage: 26.4. ? 26.5. GESTATIONAL WEEK   (2ND TRIMESTER)
     Route: 064
     Dates: start: 20200319, end: 20200320
  3. ZYPREXA [Suspect]
     Active Substance: OLANZAPINE
     Indication: BIPOLAR DISORDER
     Dosage: 10 [MG/D ]/ PROBABLY UNTIL DELIVERY ? 24. ? 29.4. GESTATIONAL WEEK (2ND TRIMESTER)
     Route: 064
     Dates: start: 20200301, end: 20200409
  4. VALPROAT [Suspect]
     Active Substance: VALPROATE SODIUM
     Indication: BIPOLAR DISORDER
     Dosage: 250 [MG/D ] ?  0. ? 22. GESTATIONAL WEEK (1ST TRIMESTER)
     Route: 064
  5. FOLSAURE SANAVITA [Concomitant]
     Indication: VITAMIN SUPPLEMENTATION
     Dosage: 26.4. ? 26.5. GESTATIONAL WEEK   (2ND TRIMESTER)
     Route: 064
     Dates: start: 20200319, end: 20200320
  6. ZYPREXA [Suspect]
     Active Substance: OLANZAPINE
     Indication: BIPOLAR DISORDER
     Dosage: 10 [MG/D ]/ PROBABLY UNTIL DELIVERY ? 24. ? 29.4. GESTATIONAL WEEK (2ND TRIMESTER)
     Route: 064
     Dates: start: 20200301, end: 20200409
  7. CYTOTEC [Concomitant]
     Active Substance: MISOPROSTOL
     Indication: LABOUR INDUCTION
     Dosage: 40.1. ? 40.1. GESTATIONAL WEEK   (3RD TRIMESTER)
     Route: 064
     Dates: start: 20200622, end: 20200622
  8. VALPROAT [Suspect]
     Active Substance: VALPROATE SODIUM
     Indication: BIPOLAR DISORDER
     Dosage: 250 [MG/D ] ?  0. ? 22. GESTATIONAL WEEK (1ST TRIMESTER)
     Route: 064

REACTIONS (2)
  - Microcephaly [Unknown]
  - Foetal exposure during pregnancy [Unknown]

NARRATIVE: CASE EVENT DATE: 202006
